FAERS Safety Report 11699139 (Version 1)
Quarter: 2015Q4

REPORT INFORMATION
  Report Type: Spontaneous
  Country: US (occurrence: US)
  Receive Date: 20151104
  Receipt Date: 20151104
  Transmission Date: 20160304
  Serious: No
  Sender: FDA-Public Use
  Company Number: US-AKRIMAX-TIR-2015-0228

PATIENT
  Age: 69 Year
  Sex: Female
  Weight: 81.72 kg

DRUGS (2)
  1. VITAMIN D [Concomitant]
     Active Substance: CHOLECALCIFEROL
     Indication: PRODUCT USED FOR UNKNOWN INDICATION
  2. TIROSINT [Suspect]
     Active Substance: LEVOTHYROXINE SODIUM
     Indication: AUTOIMMUNE THYROIDITIS
     Dosage: ONCE DAILY
     Route: 048
     Dates: start: 201507

REACTIONS (8)
  - Dry skin [Unknown]
  - Weight increased [Unknown]
  - Thyroid function test abnormal [Unknown]
  - Hair disorder [Unknown]
  - Lip haemorrhage [Unknown]
  - Body temperature abnormal [Unknown]
  - Hair texture abnormal [Unknown]
  - Chapped lips [Unknown]

NARRATIVE: CASE EVENT DATE: 201507
